FAERS Safety Report 4755459-7 (Version None)
Quarter: 2005Q3

REPORT INFORMATION
  Report Type: 
  Country: None (occurrence: None)
  Receive Date: 20050829
  Receipt Date: 20050815
  Transmission Date: 20060218
  Serious: Yes (Other)
  Sender: FDA-Public Use
  Company Number: 2005117118

PATIENT
  Age: 3 Year
  Sex: Male
  Weight: 11.3399 kg

DRUGS (1)
  1. CHILDREN'S PEDIACARE NIGHTREST COUGH AND COLD (PSEUDOEPHEDRINE, DEXTRO [Suspect]
     Indication: PYREXIA
     Dosage: 1 TSP ONCE, ORAL
     Route: 048
     Dates: start: 20050812, end: 20050812

REACTIONS (1)
  - TREATMENT NONCOMPLIANCE [None]
